FAERS Safety Report 5164797-8 (Version None)
Quarter: 2006Q4

REPORT INFORMATION
  Report Type: 
  Country: None (occurrence: None)
  Receive Date: 20061205
  Receipt Date: 20060922
  Transmission Date: 20070319
  Serious: Yes (Hospitalization)
  Sender: FDA-Public Use
  Company Number: CO-AVENTIS-200619967GDDC

PATIENT
  Age: 61 Year
  Sex: Female
  Weight: 68 kg

DRUGS (4)
  1. ARAVA [Suspect]
     Indication: RHEUMATOID ARTHRITIS
     Route: 048
     Dates: start: 20060824, end: 20060826
  2. ARAVA [Suspect]
     Route: 048
     Dates: start: 20060827, end: 20060907
  3. NAPROXEN [Concomitant]
     Indication: ARTHRITIS
     Route: 048
     Dates: start: 20050209
  4. ALENDRONATE SODIUM [Concomitant]
     Indication: OSTEOPOROSIS
     Route: 048
     Dates: start: 20030101

REACTIONS (10)
  - BLOOD ALKALINE PHOSPHATASE INCREASED [None]
  - BREAST DISCHARGE [None]
  - BREAST INFECTION [None]
  - COUGH [None]
  - HEPATIC ENZYME INCREASED [None]
  - PRURITUS [None]
  - PYREXIA [None]
  - RASH [None]
  - RASH PRURITIC [None]
  - TRANSAMINASES INCREASED [None]
